FAERS Safety Report 4797981-3 (Version None)
Quarter: 2005Q3

REPORT INFORMATION
  Report Type: 
  Country: None (occurrence: None)
  Receive Date: 20050929
  Receipt Date: 20050830
  Transmission Date: 20060218
  Serious: No
  Sender: FDA-Public Use
  Company Number: 05P-163-0309832

PATIENT
  Age: 60 Year
  Sex: Female
  Weight: 90.7194 kg

DRUGS (6)
  1. HUMIRA [Suspect]
     Indication: RHEUMATOID ARTHRITIS
     Dosage: 40 MG, 1 IN 1 WK, SUBCUTANEOUS
     Route: 058
     Dates: start: 20030101
  2. OXYCOCET [Concomitant]
  3. TRAZODONE HCL [Concomitant]
  4. PARAFON FORTE [Concomitant]
  5. DIAZEPAM [Concomitant]
  6. TOPIRAMATE [Concomitant]

REACTIONS (2)
  - ASTHENIA [None]
  - BREAST MASS [None]
